FAERS Safety Report 9848372 (Version 2)
Quarter: 2014Q1

REPORT INFORMATION
  Report Type: Report from Study
  Country: NL (occurrence: NL)
  Receive Date: 20140128
  Receipt Date: 20140128
  Transmission Date: 20141002
  Serious: Yes (Hospitalization)
  Sender: FDA-Public Use
  Company Number: NL-JNJFOC-20131205492

PATIENT
  Age: 80 Year
  Sex: Male
  Weight: 99 kg

DRUGS (11)
  1. XARELTO [Suspect]
     Indication: ATRIAL FIBRILLATION
     Route: 048
     Dates: start: 20130518
  2. XARELTO [Suspect]
     Indication: CEREBROVASCULAR ACCIDENT PROPHYLAXIS
     Route: 048
     Dates: start: 20130518
  3. PARACETAMOL [Concomitant]
     Route: 048
     Dates: start: 20110808
  4. PERINDOPRIL [Concomitant]
     Route: 065
     Dates: start: 20040617
  5. ISOSORBIDE DINITRATE [Concomitant]
     Route: 065
     Dates: start: 19981209
  6. METOPROLOL [Concomitant]
     Route: 065
     Dates: start: 20090903
  7. SIMVASTATINE [Concomitant]
     Route: 065
     Dates: start: 19990617
  8. FUROSEMIDE [Concomitant]
     Route: 065
     Dates: start: 20111121
  9. DIGOXINE [Concomitant]
     Route: 065
     Dates: start: 20121130
  10. ACENOCOUMAROL [Concomitant]
     Indication: ANTICOAGULANT THERAPY
     Route: 065
     Dates: start: 20110221, end: 20130515
  11. ALLOPURINOL [Concomitant]
     Route: 065
     Dates: start: 20110221

REACTIONS (4)
  - Cardiac failure [Recovered/Resolved]
  - Anaemia [Recovered/Resolved]
  - Dehydration [Recovered/Resolved]
  - Anaemia [Not Recovered/Not Resolved]
